FAERS Safety Report 21204690 (Version 1)
Quarter: 2022Q3

REPORT INFORMATION
  Report Type: Report from Study
  Country: US (occurrence: US)
  Receive Date: 20220812
  Receipt Date: 20220812
  Transmission Date: 20221026
  Serious: No
  Sender: FDA-Public Use
  Company Number: US-NOVARTISTESTPH-NVSC2022US182144

PATIENT
  Sex: Female

DRUGS (1)
  1. COSENTYX [Suspect]
     Active Substance: SECUKINUMAB
     Indication: Product used for unknown indication
     Dosage: 150 MG, Q72H
     Route: 058
     Dates: start: 20220713

REACTIONS (6)
  - Mouth ulceration [Unknown]
  - Rash [Unknown]
  - Taste disorder [Unknown]
  - Muscle spasms [Unknown]
  - COVID-19 [Unknown]
  - Inappropriate schedule of product administration [Unknown]
